FAERS Safety Report 5270178-9 (Version None)
Quarter: 2007Q1

REPORT INFORMATION
  Report Type: 
  Country: None (occurrence: None)
  Receive Date: 20070320
  Receipt Date: 20070305
  Transmission Date: 20070707
  Serious: Yes (Hospitalization, Other)
  Sender: FDA-Public Use
  Company Number: US-AMGEN-STX211978

PATIENT
  Sex: Female
  Weight: 79.9 kg

DRUGS (20)
  1. ENBREL [Suspect]
     Indication: RHEUMATOID ARTHRITIS
     Route: 058
     Dates: start: 20000202, end: 20060815
  2. DICLOFENAC SODIUM [Suspect]
  3. DIOVAN [Suspect]
  4. LASIX [Suspect]
  5. PROZAC [Concomitant]
  6. PROTONIX [Concomitant]
  7. PREDNISONE [Concomitant]
  8. LIPITOR [Concomitant]
  9. COREG [Concomitant]
  10. IRON [Concomitant]
  11. ALBUTEROL [Concomitant]
  12. ATROVENT [Concomitant]
  13. COUMADIN [Concomitant]
  14. VITAMIN D [Concomitant]
  15. CALCIUM CARBONATE [Concomitant]
  16. POTASSIUM CHLORIDE [Concomitant]
  17. PERCOCET [Concomitant]
  18. NIFEDIPINE [Concomitant]
  19. SPIRIVA [Concomitant]
  20. PROCRIT [Concomitant]

REACTIONS (21)
  - ANAEMIA [None]
  - BRONCHITIS [None]
  - CARDIAC FAILURE CONGESTIVE [None]
  - CARDIOMYOPATHY [None]
  - CATARACT [None]
  - CELLULITIS [None]
  - CHRONIC OBSTRUCTIVE PULMONARY DISEASE [None]
  - DEEP VEIN THROMBOSIS [None]
  - DEHYDRATION [None]
  - GROIN PAIN [None]
  - HAEMATOCHEZIA [None]
  - HAEMATURIA [None]
  - HYPERLIPIDAEMIA [None]
  - HYPERTENSION [None]
  - MYOCARDIAL INFARCTION [None]
  - OEDEMA PERIPHERAL [None]
  - OVARIAN CYST [None]
  - PAIN IN EXTREMITY [None]
  - PNEUMONIA [None]
  - RENAL FAILURE [None]
  - URINARY TRACT INFECTION [None]
